FAERS Safety Report 6832803-8 (Version None)
Quarter: 2010Q3

REPORT INFORMATION
  Report Type: 
  Country: None (occurrence: None)
  Receive Date: 20100712
  Receipt Date: 20070319
  Transmission Date: 20110219
  Serious: No
  Sender: FDA-Public Use
  Company Number: US-PFIZER INC-2007023241

PATIENT
  Sex: Female

DRUGS (3)
  1. CHANTIX [Suspect]
  2. EFFEXOR [Concomitant]
     Indication: ANXIETY
  3. KLONOPIN [Concomitant]
     Indication: ANXIETY

REACTIONS (2)
  - NAUSEA [None]
  - NERVOUSNESS [None]
